FAERS Safety Report 4544226-5 (Version None)
Quarter: 2005Q1

REPORT INFORMATION
  Report Type: 
  Country: None (occurrence: None)
  Receive Date: 20050104
  Receipt Date: 20041228
  Transmission Date: 20050727
  Serious: Yes (Other)
  Sender: FDA-Public Use
  Company Number: 200422223GDDC

PATIENT
  Age: 45 Year
  Sex: Female

DRUGS (10)
  1. NICODERM [Suspect]
     Indication: SMOKING CESSATION THERAPY
     Route: 062
     Dates: start: 20041206
  2. FLUOXETINE HYDROCHLORIDE [Concomitant]
     Indication: DEPRESSION
     Dosage: 40MG PER DAY
     Route: 048
     Dates: start: 19940101
  3. CISAPRIDE [Concomitant]
     Indication: BLOOD PRESSURE ABNORMAL
  4. CLONAZEPAM [Concomitant]
     Indication: ANXIETY
     Dates: start: 19960101
  5. PHENFORMIN HYDROCHLORIDE [Concomitant]
     Indication: DEPRESSION
     Dates: start: 19950101
  6. ACETYLSALICYLIC ACID [Concomitant]
  7. ACETAMINOPHEN [Concomitant]
  8. GABAPENTIN [Concomitant]
     Indication: PANIC ATTACK
  9. NAPROXEN [Concomitant]
     Indication: ARTHRITIS
  10. MIRTAZAPINE [Concomitant]
     Indication: DEPRESSION

REACTIONS (4)
  - DEPRESSED MOOD [None]
  - DRUG INEFFECTIVE [None]
  - NICOTINE DEPENDENCE [None]
  - SUICIDE ATTEMPT [None]
